FAERS Safety Report 12509078 (Version 3)
Quarter: 2016Q3

REPORT INFORMATION
  Report Type: Spontaneous
  Country: US (occurrence: US)
  Receive Date: 20160629
  Receipt Date: 20160930
  Transmission Date: 20161109
  Serious: Yes (Other)
  Sender: FDA-Public Use
  Company Number: US-TEVA-670623USA

PATIENT
  Age: 54 Year
  Sex: Male

DRUGS (1)
  1. ZECUITY [Suspect]
     Active Substance: SUMATRIPTAN SUCCINATE
     Dosage: 6.5 MG OVER 4 HOURS
     Route: 062
     Dates: start: 201605

REACTIONS (10)
  - Application site burn [Recovering/Resolving]
  - Application site pain [Unknown]
  - Application site vesicles [Unknown]
  - Application site pain [Not Recovered/Not Resolved]
  - Application site irritation [Recovered/Resolved]
  - Application site laceration [Unknown]
  - Product physical issue [Unknown]
  - Application site exfoliation [Unknown]
  - Application site scar [Not Recovered/Not Resolved]
  - Application site pain [Recovered/Resolved]

NARRATIVE: CASE EVENT DATE: 201605
